FAERS Safety Report 8794605 (Version 3)
Quarter: 2012Q4

REPORT INFORMATION
  Report Type: 
  Country: DE (occurrence: JP)
  Receive Date: 20120917
  Receipt Date: 20121101
  Transmission Date: 20130627
  Serious: Yes (Hospitalization)
  Sender: FDA-Public Use
  Company Number: JP-FRI-1000038420

PATIENT
  Age: 82 Year
  Sex: Female
  Weight: 58 kg

DRUGS (11)
  1. MEMANTINE [Suspect]
     Indication: DEMENTIA
     Dosage: 5 mg
     Route: 048
     Dates: start: 20120808, end: 20120815
  2. YOKUKAN-SAN [Suspect]
     Indication: DEMENTIA
     Dosage: 7.5 g
     Route: 048
     Dates: start: 20120808, end: 20120815
  3. MENESIT [Concomitant]
     Indication: DEMENTIA
     Dosage: 500 mg
     Route: 048
  4. BI-SIFROL [Concomitant]
     Indication: DEMENTIA
     Dosage: 3 mg
     Route: 048
  5. COMTAN [Concomitant]
     Indication: DEMENTIA
     Dosage: 300 mg
     Route: 048
  6. ARTIST [Concomitant]
     Indication: HYPERTENSION
     Dosage: 1.25 mg
     Route: 048
  7. AMLODIN OD [Concomitant]
     Indication: HYPERTENSION
     Dosage: 5 mg
     Route: 048
  8. EURODIN [Concomitant]
     Indication: INSOMNIA
     Dosage: 4 mg
     Route: 048
  9. HALCION [Concomitant]
     Indication: INSOMNIA
     Dosage: 0.25 mg
     Route: 048
  10. MAGMITT [Concomitant]
     Indication: CONSTIPATION
     Dosage: 990 mg
     Route: 048
  11. PURSENNID [Concomitant]
     Indication: CONSTIPATION
     Dosage: 24 mg
     Route: 048

REACTIONS (2)
  - Rhabdomyolysis [Recovered/Resolved]
  - Renal failure acute [Recovered/Resolved]
